FAERS Safety Report 24235300 (Version 2)
Quarter: 2024Q3

REPORT INFORMATION
  Report Type: Report from Study
  Country: CL (occurrence: CL)
  Receive Date: 20240821
  Receipt Date: 20240829
  Transmission Date: 20241016
  Serious: No
  Sender: SANDOZ
  Company Number: CL-SANDOZ-SDZ2024CL074063

PATIENT
  Age: 52 Year
  Sex: Female

DRUGS (1)
  1. ERELZI [Suspect]
     Active Substance: ETANERCEPT-SZZS
     Indication: Rheumatoid arthritis
     Dosage: 50 MG ONCE A WEEK/50 MG/1 ML (EVERY MONDAY)
     Route: 058
     Dates: start: 20240715

REACTIONS (2)
  - Injection site pain [Recovered/Resolved]
  - Fatigue [Recovered/Resolved]

NARRATIVE: CASE EVENT DATE: 20240715
